FAERS Safety Report 11756750 (Version 1)
Quarter: 2015Q4

REPORT INFORMATION
  Report Type: Spontaneous
  Country: US (occurrence: US)
  Receive Date: 20151120
  Receipt Date: 20151120
  Transmission Date: 20160304
  Serious: No
  Sender: FDA-Public Use
  Company Number: US-TEVA-603119USA

PATIENT
  Sex: Male
  Weight: 118.04 kg

DRUGS (1)
  1. FUROSEMIDE. [Suspect]
     Active Substance: FUROSEMIDE
     Indication: OEDEMA
     Dosage: 20 MILLIGRAM DAILY;
     Route: 065
     Dates: start: 201508

REACTIONS (6)
  - Discomfort [Unknown]
  - Constipation [Unknown]
  - Headache [Unknown]
  - Visual impairment [Unknown]
  - Chest pain [Unknown]
  - Abdominal distension [Unknown]
